FAERS Safety Report 4830813-3 (Version None)
Quarter: 2005Q4

REPORT INFORMATION
  Report Type: 
  Country: None (occurrence: None)
  Receive Date: 20051117
  Receipt Date: 20050725
  Transmission Date: 20060501
  Serious: Yes (Hospitalization)
  Sender: FDA-Public Use
  Company Number: US-MERCK-0507USA03908

PATIENT
  Age: 44 Year
  Sex: Male
  Weight: 118 kg

DRUGS (42)
  1. GABAPENTIN [Concomitant]
     Indication: ARTHRALGIA
     Route: 065
     Dates: start: 20021101, end: 20030301
  2. VICODIN [Concomitant]
     Indication: BACK PAIN
     Route: 065
     Dates: start: 19990101, end: 19990401
  3. VICODIN [Concomitant]
     Indication: ARTHRALGIA
     Route: 065
     Dates: start: 19990101, end: 19990401
  4. DAYPRO [Concomitant]
     Indication: BACK PAIN
     Route: 065
     Dates: start: 19990501, end: 19990701
  5. DAYPRO [Concomitant]
     Indication: ARTHRALGIA
     Route: 065
     Dates: start: 19990501, end: 19990701
  6. LORTAB [Concomitant]
     Indication: BACK PAIN
     Route: 065
     Dates: start: 19990701, end: 19990901
  7. LORTAB [Concomitant]
     Indication: ARTHRALGIA
     Route: 065
     Dates: start: 19990701, end: 19990901
  8. LORAZEPAM [Concomitant]
     Indication: DEPRESSION
     Route: 065
     Dates: start: 20030501, end: 20030501
  9. MIRTAZAPINE [Concomitant]
     Indication: DEPRESSION
     Route: 065
     Dates: start: 20021201
  10. ZOLOFT [Concomitant]
     Indication: DEPRESSION
     Route: 065
     Dates: start: 20021201
  11. ZOLOFT [Concomitant]
     Indication: ANXIETY DISORDER
     Route: 065
     Dates: start: 20021201
  12. DIVALPROEX SODIUM [Concomitant]
     Indication: ALCOHOLISM
     Route: 065
     Dates: start: 20040901
  13. DIVALPROEX SODIUM [Concomitant]
     Indication: DRUG ABUSER
     Route: 065
     Dates: start: 20040901
  14. CLONAZEPAM [Concomitant]
     Indication: ALCOHOLISM
     Route: 065
     Dates: start: 20030501, end: 20040901
  15. CLONAZEPAM [Concomitant]
     Indication: DRUG ABUSER
     Route: 065
     Dates: start: 20030501, end: 20040901
  16. ELAVIL [Concomitant]
     Indication: DEPRESSION
     Route: 065
     Dates: start: 19990101, end: 19990101
  17. PANTOPRAZOLE [Concomitant]
     Route: 065
  18. PREVPAC [Concomitant]
     Route: 065
  19. LANSOPRAZOLE [Concomitant]
     Route: 065
  20. TRIAMCINOLONE [Concomitant]
     Route: 065
  21. VIOXX [Suspect]
     Indication: ARTHRALGIA
     Route: 048
     Dates: start: 19990901, end: 19990901
  22. VIOXX [Suspect]
     Route: 048
     Dates: start: 20030101, end: 20040901
  23. VIOXX [Suspect]
     Indication: OSTEOARTHRITIS
     Route: 048
     Dates: start: 19990901, end: 19990901
  24. VIOXX [Suspect]
     Route: 048
     Dates: start: 20030101, end: 20040901
  25. LISINOPRIL [Concomitant]
     Indication: HYPERTENSION
     Route: 065
     Dates: start: 20030501
  26. ATENOLOL [Concomitant]
     Indication: HYPERTENSION
     Route: 065
     Dates: start: 20030501
  27. ACCUPRIL [Concomitant]
     Indication: HYPERTENSION
     Route: 065
     Dates: start: 20030301, end: 20030401
  28. COUMADIN [Concomitant]
     Route: 065
     Dates: start: 20030501
  29. LOVENOX [Concomitant]
     Indication: MYOCARDIAL INFARCTION
     Route: 065
     Dates: start: 20030901, end: 20031201
  30. ASPIRIN [Concomitant]
     Indication: PROPHYLAXIS
     Route: 065
     Dates: start: 20030501
  31. PLAVIX [Concomitant]
     Indication: MYOCARDIAL INFARCTION
     Route: 065
     Dates: start: 20030501, end: 20031201
  32. LIPITOR [Concomitant]
     Indication: BLOOD CHOLESTEROL INCREASED
     Route: 065
     Dates: start: 20030501
  33. ZETIA [Concomitant]
     Indication: BLOOD CHOLESTEROL INCREASED
     Route: 065
     Dates: start: 20031101
  34. IBUPROFEN [Concomitant]
     Indication: BACK PAIN
     Route: 065
     Dates: start: 20021101, end: 20030201
  35. IBUPROFEN [Concomitant]
     Indication: ARTHRALGIA
     Route: 065
     Dates: start: 20021101, end: 20030201
  36. GABAPENTIN [Concomitant]
     Indication: BACK PAIN
     Route: 065
     Dates: start: 20021101, end: 20030301
  37. AZELASTINE HYDROCHLORIDE [Concomitant]
     Route: 065
  38. HALOBETASOL PROPIONATE [Concomitant]
     Route: 065
  39. CLOBETASOL PROPIONATE [Concomitant]
     Route: 065
  40. NITROGLYCERIN [Concomitant]
     Route: 065
  41. TACROLIMUS [Concomitant]
     Route: 065
  42. MOMETASONE FUROATE [Concomitant]
     Route: 065

REACTIONS (33)
  - ABDOMINAL PAIN [None]
  - ACUTE MYOCARDIAL INFARCTION [None]
  - ANAEMIA [None]
  - BACK DISORDER [None]
  - BLOOD GLUCOSE INCREASED [None]
  - BLOOD PRESSURE INCREASED [None]
  - BRONCHITIS ACUTE [None]
  - CEREBROVASCULAR ACCIDENT [None]
  - CHEST PAIN [None]
  - CORONARY ARTERY OCCLUSION [None]
  - CORONARY ARTERY STENOSIS [None]
  - CORONARY OSTIAL STENOSIS [None]
  - DEPRESSION [None]
  - DRESSLER'S SYNDROME [None]
  - DYSHIDROSIS [None]
  - DYSPNOEA [None]
  - EMOTIONAL DISTRESS [None]
  - GOUT [None]
  - HYPERLIPIDAEMIA [None]
  - LOW DENSITY LIPOPROTEIN DECREASED [None]
  - OBESITY [None]
  - PAIN [None]
  - PAIN IN EXTREMITY [None]
  - PEPTIC ULCER [None]
  - PLATELET AGGREGATION INCREASED [None]
  - PNEUMONIA [None]
  - POLYSUBSTANCE ABUSE [None]
  - PSORIASIS [None]
  - RHINITIS ALLERGIC [None]
  - SUPRAVENTRICULAR TACHYCARDIA [None]
  - THROMBOSIS [None]
  - VENTRICULAR HYPERTROPHY [None]
  - VIRAL INFECTION [None]
